FAERS Safety Report 21285948 (Version 4)
Quarter: 2023Q2

REPORT INFORMATION
  Report Type: Spontaneous
  Country: US (occurrence: US)
  Receive Date: 20220902
  Receipt Date: 20230412
  Transmission Date: 20230721
  Serious: No
  Sender: FDA-Public Use
  Company Number: US-BRISTOL-MYERS SQUIBB COMPANY-2022-099881

PATIENT
  Age: 80 Year
  Sex: Female

DRUGS (1)
  1. REVLIMID [Suspect]
     Active Substance: LENALIDOMIDE
     Indication: Plasma cell myeloma
     Dosage: 1 CAPSULE (2.5 MILLIGRAM) EACH DAY?FREQUENCY: TAKE 1 CAPSULE BY MOUTH.
     Route: 048
     Dates: start: 20220217, end: 20230227

REACTIONS (2)
  - Full blood count decreased [Recovered/Resolved]
  - Product dose omission issue [Unknown]
